FAERS Safety Report 7367070-2 (Version None)
Quarter: 2011Q1

REPORT INFORMATION
  Report Type: 
  Country: None (occurrence: None)
  Receive Date: 20110322
  Receipt Date: 20100526
  Transmission Date: 20110831
  Serious: No
  Sender: FDA-Public Use
  Company Number: US-TYCO HEALTHCARE/MALLINCKRODT-T201001357

PATIENT

DRUGS (3)
  1. METHADONE [Suspect]
     Indication: PAIN
     Dosage: 15 MG, TID
     Dates: start: 20040101
  2. MULTI-VITAMINS [Concomitant]
     Dosage: 1 TAB QD
     Route: 048
  3. XANAX [Concomitant]
     Indication: SLEEP DISORDER
     Dosage: 1-2 QHS
     Route: 048
     Dates: start: 20040101

REACTIONS (1)
  - TOOTH DECALCIFICATION [None]
